FAERS Safety Report 15417044 (Version 1)
Quarter: 2018Q3

REPORT INFORMATION
  Report Type: Spontaneous
  Country: US (occurrence: US)
  Receive Date: 20180924
  Receipt Date: 20180924
  Transmission Date: 20181010
  Serious: No
  Sender: FDA-Public Use
  Company Number: US-ASTRAZENECA-2018SF10035

PATIENT
  Age: 1020 Month
  Sex: Male
  Weight: 69.9 kg

DRUGS (3)
  1. TUDORZA PRESSAIR [Suspect]
     Active Substance: ACLIDINIUM BROMIDE
     Indication: CHRONIC OBSTRUCTIVE PULMONARY DISEASE
     Dosage: 400 MCG ONE PUFF TWICE DAILY
     Route: 055
  2. DONEPEZIL. [Concomitant]
     Active Substance: DONEPEZIL
     Route: 048
  3. IRBESARTAN. [Concomitant]
     Active Substance: IRBESARTAN
     Route: 048

REACTIONS (3)
  - Weight decreased [Not Recovered/Not Resolved]
  - Drug dose omission [Unknown]
  - Device issue [Unknown]

NARRATIVE: CASE EVENT DATE: 201805
